FAERS Safety Report 26022169 (Version 1)
Quarter: 2025Q4

REPORT INFORMATION
  Report Type: Spontaneous
  Country: US (occurrence: US)
  Receive Date: 20251110
  Receipt Date: 20251110
  Transmission Date: 20260117
  Serious: No
  Sender: SANOFI AVENTIS
  Company Number: US-SA-2025SA330552

PATIENT
  Sex: Female
  Weight: 68.18 kg

DRUGS (7)
  1. DUPIXENT [Suspect]
     Active Substance: DUPILUMAB
     Indication: Dermatitis atopic
     Dosage: 300 MG, QOW
     Route: 058
     Dates: end: 20251021
  2. MAGNESIUM [Concomitant]
     Active Substance: MAGNESIUM
     Dosage: UNK
  3. VITAMIN D3 [Concomitant]
     Active Substance: CHOLECALCIFEROL
     Dosage: UNK
  4. BIOTIN [Concomitant]
     Active Substance: BIOTIN
     Dosage: UNK
  5. ZEPBOUND [Concomitant]
     Active Substance: TIRZEPATIDE
     Dosage: UNK
  6. EBGLYSS [Concomitant]
     Active Substance: LEBRIKIZUMAB-LBKZ
     Dosage: UNK
  7. PLAQUENIL [Concomitant]
     Active Substance: HYDROXYCHLOROQUINE SULFATE
     Dosage: UNK

REACTIONS (7)
  - Photophobia [Unknown]
  - Focal segmental glomerulosclerosis [Unknown]
  - Glomerular filtration rate decreased [Unknown]
  - Vision blurred [Unknown]
  - Pruritus [Not Recovered/Not Resolved]
  - Rhinitis [Unknown]
  - Rash [Unknown]
